FAERS Safety Report 10597954 (Version 1)
Quarter: 2014Q4

REPORT INFORMATION
  Report Type: Spontaneous
  Country: FR (occurrence: FR)
  Receive Date: 20141121
  Receipt Date: 20141121
  Transmission Date: 20150529
  Serious: Yes (Death, Hospitalization, Other)
  Sender: FDA-Public Use
  Company Number: FR-PFIZER INC-2014319909

PATIENT
  Age: 85 Year
  Sex: Female

DRUGS (9)
  1. CORDARONE [Suspect]
     Active Substance: AMIODARONE HYDROCHLORIDE
     Indication: ARRHYTHMIA
     Dosage: 200 MG, 1X/DAY
     Route: 048
     Dates: start: 201404
  2. SEROPLEX [Suspect]
     Active Substance: ESCITALOPRAM OXALATE
     Dosage: 10 MG, 1X/DAY
     Route: 048
     Dates: start: 20140701
  3. LASILIX [Suspect]
     Active Substance: FUROSEMIDE
     Dosage: 80 MG, 1X/DAY
     Route: 048
     Dates: start: 201406
  4. COOLMETEC [Suspect]
     Active Substance: HYDROCHLOROTHIAZIDE\OLMESARTAN MEDOXOMIL
     Indication: HYPERTENSION
     Dosage: 1 DF, 1X/DAY
     Route: 048
  5. PREVISCAN [Suspect]
     Active Substance: FLUINDIONE
     Dosage: 20 MG, UNK
     Route: 048
     Dates: start: 201406
  6. PREDNISONE. [Suspect]
     Active Substance: PREDNISONE
     Dosage: UNK
     Route: 048
  7. BISOCE [Suspect]
     Active Substance: BISOPROLOL
     Dosage: 2.5 MG, 1X/DAY
     Route: 048
     Dates: start: 201406
  8. INEXIUM [Concomitant]
     Active Substance: ESOMEPRAZOLE
     Dosage: 40 MG, UNK
  9. LERCAN [Concomitant]
     Active Substance: LERCANIDIPINE
     Indication: HYPERTENSION
     Dosage: UNK

REACTIONS (6)
  - Ventricular fibrillation [Fatal]
  - Hyponatraemia [Unknown]
  - Torsade de pointes [Fatal]
  - Hypokalaemia [Recovered/Resolved]
  - International normalised ratio increased [Recovered/Resolved]
  - Acute kidney injury [Unknown]

NARRATIVE: CASE EVENT DATE: 20140704
